FAERS Safety Report 26038206 (Version 2)
Quarter: 2025Q4

REPORT INFORMATION
  Report Type: Report from Study
  Country: US (occurrence: US)
  Receive Date: 20251113
  Receipt Date: 20251119
  Transmission Date: 20260118
  Serious: No
  Sender: IPSEN BIOPHARMACEUTICALS, INC.
  Company Number: US-IPSEN Group, Research and Development-2025-27874

PATIENT
  Age: 35 Year
  Sex: Female

DRUGS (2)
  1. IQIRVO [Suspect]
     Active Substance: ELAFIBRANOR
     Indication: Primary biliary cholangitis
     Dosage: BY MOUTH
     Route: 048
     Dates: start: 202501
  2. IQIRVO [Suspect]
     Active Substance: ELAFIBRANOR
     Dosage: BY MOUTH
     Route: 048
     Dates: start: 20250731

REACTIONS (3)
  - Muscle spasms [Unknown]
  - Accidental overdose [Unknown]
  - Fatigue [Not Recovered/Not Resolved]

NARRATIVE: CASE EVENT DATE: 20250101
